FAERS Safety Report 18323409 (Version 1)
Quarter: 2020Q3

REPORT INFORMATION
  Report Type: Spontaneous
  Country: GB (occurrence: GB)
  Receive Date: 20200928
  Receipt Date: 20200928
  Transmission Date: 20201103
  Serious: Yes (Death, Hospitalization)
  Sender: FDA-Public Use
  Company Number: GB-BIOVITRUM-2020GB5079

PATIENT
  Age: 50 Year
  Sex: Male

DRUGS (1)
  1. ANAKINRA [Suspect]
     Active Substance: ANAKINRA
     Indication: COVID-19
     Route: 042

REACTIONS (3)
  - Off label use [Unknown]
  - Superior sagittal sinus thrombosis [Fatal]
  - Brain stem syndrome [Fatal]
